FAERS Safety Report 12231937 (Version 2)
Quarter: 2016Q2

REPORT INFORMATION
  Report Type: Spontaneous
  Country: US (occurrence: US)
  Receive Date: 20160401
  Receipt Date: 20160512
  Transmission Date: 20160815
  Serious: Yes (Disabling, Other)
  Sender: FDA-Public Use
  Company Number: US-TOLMAR INC.-1050137

PATIENT
  Age: 60 Year
  Sex: Female
  Weight: 106.82 kg

DRUGS (1)
  1. METRONIDAZOLE GEL USP, 1% [Suspect]
     Active Substance: METRONIDAZOLE
     Indication: ROSACEA
     Route: 061
     Dates: start: 20140328, end: 20140331

REACTIONS (8)
  - Acne [Unknown]
  - Adverse drug reaction [Recovering/Resolving]
  - Pain of skin [Unknown]
  - Erythema [Unknown]
  - Facial pain [Unknown]
  - Burns second degree [Unknown]
  - Burning sensation [Unknown]
  - Blister [Unknown]

NARRATIVE: CASE EVENT DATE: 20140328
